FAERS Safety Report 4317778-8 (Version None)
Quarter: 2004Q1

REPORT INFORMATION
  Report Type: 
  Country: None (occurrence: None)
  Receive Date: 20040315
  Receipt Date: 20040106
  Transmission Date: 20041129
  Serious: Yes (Hospitalization)
  Sender: FDA-Public Use
  Company Number: PHEH2004US00536

PATIENT
  Age: 70 Year
  Sex: Male
  Weight: 113 kg

DRUGS (8)
  1. ZELNORM [Suspect]
     Indication: CONSTIPATION
     Dosage: 6 MG, ONCE/SINGLE
     Route: 048
     Dates: start: 20031222, end: 20031222
  2. LOTENSIN [Concomitant]
     Indication: HYPERTENSION
     Dosage: 40 MG, QD
  3. GLUCOTROL [Concomitant]
     Indication: DIABETES MELLITUS NON-INSULIN-DEPENDENT
     Dosage: 10 MG, QD
  4. LANTUS [Concomitant]
     Indication: DIABETES MELLITUS NON-INSULIN-DEPENDENT
     Dosage: 45 UNITS, QD
     Route: 058
  5. NOVOLOG [Concomitant]
     Indication: DIABETES MELLITUS NON-INSULIN-DEPENDENT
     Dosage: 10 UNITS, PRN
  6. HYDROCHLOROTHIAZIDE [Concomitant]
     Indication: HYPERTENSION
     Dosage: 37.5 MG, UNK
  7. AMLODIPINE [Concomitant]
     Indication: HYPERTENSION
     Dosage: 10 MG, UNK
  8. FUROSEMIDE [Concomitant]
     Dosage: 40 MG, UNK

REACTIONS (13)
  - ASTHENIA [None]
  - BLOOD PRESSURE DIASTOLIC DECREASED [None]
  - DYSARTHRIA [None]
  - DYSPNOEA [None]
  - ELECTROCARDIOGRAM ABNORMAL [None]
  - FATIGUE [None]
  - HYPOTENSION [None]
  - MEDICATION ERROR [None]
  - PRURITUS [None]
  - TONGUE DISORDER [None]
  - TONGUE OEDEMA [None]
  - URTICARIA [None]
  - VOMITING [None]
